FAERS Safety Report 19683283 (Version 1)
Quarter: 2021Q3

REPORT INFORMATION
  Report Type: Spontaneous
  Country: US (occurrence: US)
  Receive Date: 20210811
  Receipt Date: 20210811
  Transmission Date: 20211014
  Serious: Yes (Other)
  Sender: FDA-Public Use
  Company Number: US-CHIESI-2021CHF00644

PATIENT
  Sex: Female

DRUGS (3)
  1. KENGREAL [Suspect]
     Active Substance: CANGRELOR
     Indication: ACUTE MYOCARDIAL INFARCTION
     Dosage: UNK
  2. KENGREAL [Suspect]
     Active Substance: CANGRELOR
     Indication: OFF LABEL USE
  3. ANGIOMAX [Suspect]
     Active Substance: BIVALIRUDIN
     Indication: ACUTE MYOCARDIAL INFARCTION
     Dosage: UNK

REACTIONS (3)
  - Off label use [Recovered/Resolved]
  - Epistaxis [Unknown]
  - Mouth haemorrhage [Unknown]
